FAERS Safety Report 22644754 (Version 1)
Quarter: 2023Q2

REPORT INFORMATION
  Report Type: Spontaneous
  Country: JP (occurrence: JP)
  Receive Date: 20230627
  Receipt Date: 20230627
  Transmission Date: 20230721
  Serious: Yes (Hospitalization)
  Sender: FDA-Public Use
  Company Number: JP-ABBVIE-5306180

PATIENT
  Age: 75 Year
  Sex: Female

DRUGS (15)
  1. RINVOQ [Suspect]
     Active Substance: UPADACITINIB
     Indication: Rheumatoid vasculitis
     Dosage: FORM STRENGTH: 15 MILLIGRAM
     Route: 048
     Dates: start: 20210622, end: 20220617
  2. HERBALS [Concomitant]
     Active Substance: HERBALS
     Indication: Constipation
     Dosage: TIME INTERVAL: 0.33333333 DAYS: 7.5 GRAM
     Route: 048
     Dates: start: 20140806
  3. ESZOPICLONE [Concomitant]
     Active Substance: ESZOPICLONE
     Indication: Insomnia
     Dosage: FORM STRENGTH: 2 MILLIGRAM
     Route: 048
     Dates: start: 20200203
  4. VONOPRAZAN FUMARATE [Concomitant]
     Active Substance: VONOPRAZAN FUMARATE
     Indication: Gastritis
     Dosage: 20 MILLIGRAM
     Route: 048
  5. ECABET SODIUM [Concomitant]
     Active Substance: ECABET SODIUM
     Indication: Gastritis
     Dosage: 3 GRAM
     Route: 048
  6. Calcium carbonate, cholecalciferol and magnesium carbonate [Concomitant]
     Indication: Prophylaxis
     Dosage: 2 TABLET
     Route: 048
     Dates: start: 20150206
  7. DENOSUMAB [Concomitant]
     Active Substance: DENOSUMAB
     Indication: Osteoporosis
     Route: 058
     Dates: start: 20130809, end: 20211130
  8. AMLODIPINE BESYLATE [Concomitant]
     Active Substance: AMLODIPINE BESYLATE
     Indication: Atrial fibrillation
     Dosage: 5 MILLIGRAM
     Route: 048
  9. ISOSORBIDE MONONITRATE [Concomitant]
     Active Substance: ISOSORBIDE MONONITRATE
     Indication: Atrial fibrillation
     Dosage: 40 MILLIGRAM
     Route: 048
  10. PREDNISOLONE [Concomitant]
     Active Substance: PREDNISOLONE
     Indication: Rheumatoid vasculitis
     Dosage: 2.5 MILLIGRAM
     Route: 048
     Dates: start: 20220419
  11. PREDNISOLONE [Concomitant]
     Active Substance: PREDNISOLONE
     Indication: Rheumatoid vasculitis
     Dosage: 5 MILLIGRAM
     Route: 048
     Dates: start: 20161110, end: 20220418
  12. FOLIC ACID [Concomitant]
     Active Substance: FOLIC ACID
     Indication: Prophylaxis
     Dosage: 5 MILLIGRAM
     Route: 048
  13. VOGLIBOSE [Concomitant]
     Active Substance: VOGLIBOSE
     Indication: Diabetes mellitus
     Dosage: TIME INTERVAL: 0.33333333 DAYS: 0.6 MILLIGRAM
     Route: 048
     Dates: start: 20120601
  14. RHEUMATREX [Suspect]
     Active Substance: METHOTREXATE SODIUM
     Indication: Rheumatoid vasculitis
     Dosage: 8 MILLIGRAM
     Route: 048
  15. SENNOSIDES [Concomitant]
     Active Substance: SENNOSIDES
     Indication: Constipation
     Dosage: 4 TABLET?FORM STRENGTH: 12 MILLIGRAM
     Route: 048

REACTIONS (1)
  - Gastric cancer [Not Recovered/Not Resolved]

NARRATIVE: CASE EVENT DATE: 20220614
